FAERS Safety Report 13328854 (Version 1)
Quarter: 2017Q1

REPORT INFORMATION
  Report Type: Report from Study
  Country: None (occurrence: US)
  Receive Date: 20170313
  Receipt Date: 20170313
  Transmission Date: 20170428
  Serious: Yes (Hospitalization)
  Sender: FDA-Public Use
  Company Number: US-ABBVIE-17K-163-1856073-00

PATIENT
  Age: 83 Year
  Sex: Male
  Weight: 56.75 kg

DRUGS (1)
  1. HUMIRA [Suspect]
     Active Substance: ADALIMUMAB
     Indication: COLITIS ULCERATIVE
     Route: 058
     Dates: start: 20161003, end: 20170207

REACTIONS (5)
  - Injection site pruritus [Recovering/Resolving]
  - Peripheral swelling [Unknown]
  - Hypotension [Unknown]
  - Chronic obstructive pulmonary disease [Unknown]
  - Joint swelling [Unknown]

NARRATIVE: CASE EVENT DATE: 2017
